FAERS Safety Report 10383185 (Version 1)
Quarter: 2014Q3

REPORT INFORMATION
  Report Type: Spontaneous
  Country: JP (occurrence: JP)
  Receive Date: 20140813
  Receipt Date: 20140813
  Transmission Date: 20150326
  Serious: Yes (Death)
  Sender: FDA-Public Use
  Company Number: JP-CELGENEUS-087-50794-14081699

PATIENT
  Age: 80 Year
  Sex: Male

DRUGS (2)
  1. VIDAZA [Suspect]
     Active Substance: AZACITIDINE
     Indication: ACUTE MYELOID LEUKAEMIA
     Route: 041
     Dates: start: 2011
  2. VIDAZA [Suspect]
     Active Substance: AZACITIDINE
     Indication: OFF LABEL USE
     Route: 041
     Dates: start: 201211, end: 201307

REACTIONS (1)
  - Acute myeloid leukaemia [Fatal]

NARRATIVE: CASE EVENT DATE: 201211
